FAERS Safety Report 16916066 (Version 1)
Quarter: 2019Q4

REPORT INFORMATION
  Report Type: Spontaneous
  Country: US (occurrence: US)
  Receive Date: 20191014
  Receipt Date: 20191014
  Transmission Date: 20200122
  Serious: Yes (Other)
  Sender: FDA-Public Use
  Company Number: US-MYLANLABS-2019M1095412

PATIENT
  Age: 58 Year
  Sex: Female
  Weight: 61 kg

DRUGS (1)
  1. ESTRADIOL TRANSDERMAL SYSTEM [Suspect]
     Active Substance: ESTRADIOL
     Indication: OSTEOPOROSIS
     Dosage: UNK UNK, QW
     Route: 062
     Dates: start: 201909

REACTIONS (3)
  - Product adhesion issue [Not Recovered/Not Resolved]
  - Wrong technique in product usage process [Not Recovered/Not Resolved]
  - Lower limb fracture [Not Recovered/Not Resolved]

NARRATIVE: CASE EVENT DATE: 201909
